FAERS Safety Report 5024849-X (Version None)
Quarter: 2006Q2

REPORT INFORMATION
  Report Type: 
  Country: None (occurrence: None)
  Receive Date: 20060607
  Receipt Date: 20060602
  Transmission Date: 20061013
  Serious: Yes (Hospitalization, Other)
  Sender: FDA-Public Use
  Company Number: HQWYE521424MAR06

PATIENT
  Age: 66 Year
  Sex: Female

DRUGS (11)
  1. NEORAL, CONTROL FOR SIROLIMUS (CYCLOSPORINE, CONTROL FOR SIROLIMUS, TA [Suspect]
     Indication: PROPHYLAXIS AGAINST TRANSPLANT REJECTION
     Dosage: ^PER PROTOCOL^ ORAL
     Route: 048
     Dates: start: 20051117
  2. NEXIUM [Concomitant]
  3. BACTRIM [Concomitant]
  4. FEXOFENADINE HCL [Concomitant]
  5. METOPROLOL SUCCINATE [Concomitant]
  6. CELLCEPT [Concomitant]
  7. CELLCEPT [Concomitant]
  8. CELLCEPT [Concomitant]
  9. PREDNISOLONE [Concomitant]
  10. PREDNISOLONE [Concomitant]
  11. PREDNISOLONE [Concomitant]

REACTIONS (6)
  - ALANINE AMINOTRANSFERASE INCREASED [None]
  - BLOOD ALKALINE PHOSPHATASE INCREASED [None]
  - BLOOD LACTATE DEHYDROGENASE INCREASED [None]
  - DRUG INEFFECTIVE [None]
  - DRUG RESISTANCE [None]
  - KIDNEY TRANSPLANT REJECTION [None]
